FAERS Safety Report 21477390 (Version 6)
Quarter: 2024Q2

REPORT INFORMATION
  Report Type: Other
  Country: AU (occurrence: None)
  Receive Date: 20221019
  Receipt Date: 20240507
  Transmission Date: 20240716
  Serious: Yes (Other)
  Sender: FDA-Public Use
  Company Number: AU-ROCHE-3077899

PATIENT
  Age: 63 Year
  Sex: Female
  Weight: 164 kg

DRUGS (6)
  1. OCRELIZUMAB [Suspect]
     Active Substance: OCRELIZUMAB
     Indication: Multiple sclerosis
     Route: 042
  2. OCRELIZUMAB [Suspect]
     Active Substance: OCRELIZUMAB
     Route: 042
     Dates: start: 20220413, end: 20220413
  3. JARDIANCE [Concomitant]
     Active Substance: EMPAGLIFLOZIN
  4. KOMBIGLYZE XR [Concomitant]
     Active Substance: METFORMIN HYDROCHLORIDE\SAXAGLIPTIN HYDROCHLORIDE
     Dosage: XR 2.5 MG/1000 MG MODIFIED RELEASE TABLETS (2.5 MG/1000 MG) MODIFIED RELEASE TABLETS DOSE: AMT: 1; F
  5. PERINDOPRIL [Concomitant]
     Active Substance: PERINDOPRIL
     Dosage: 8 MG TABLETS DOSE: AMT: 1; FREQ: AM
  6. ZOLOFT [Concomitant]
     Active Substance: SERTRALINE HYDROCHLORIDE
     Dosage: TABLETS 100 MG?TABLETS DOSE: AMT: 1;?FREQ: PM

REACTIONS (13)
  - Infusion related reaction [Recovered/Resolved with Sequelae]
  - Urinary tract infection [Not Recovered/Not Resolved]
  - Chest discomfort [Recovered/Resolved]
  - Throat irritation [Recovered/Resolved]
  - Blood pressure increased [Unknown]
  - Multiple sclerosis [Unknown]
  - Dizziness [Unknown]
  - Fall [Unknown]
  - Fatigue [Recovering/Resolving]
  - Muscle spasms [Recovering/Resolving]
  - Nausea [Unknown]
  - Vomiting [Unknown]
  - Hypersensitivity [Recovered/Resolved]

NARRATIVE: CASE EVENT DATE: 20220413
